FAERS Safety Report 18048480 (Version 2)
Quarter: 2020Q3

REPORT INFORMATION
  Report Type: Spontaneous
  Country: US (occurrence: US)
  Receive Date: 20200721
  Receipt Date: 20200731
  Transmission Date: 20201103
  Serious: Yes (Other)
  Sender: FDA-Public Use
  Company Number: US-UCBSA-2020027809

PATIENT
  Sex: Male
  Weight: 104 kg

DRUGS (3)
  1. CIMZIA [Suspect]
     Active Substance: CERTOLIZUMAB PEGOL
     Dosage: UNK, MONTHLY (QM)
     Route: 058
  2. CIMZIA [Suspect]
     Active Substance: CERTOLIZUMAB PEGOL
     Indication: PSORIATIC ARTHROPATHY
     Dosage: 400 MILLIGRAM, MONTHLY (QM)
     Route: 058
     Dates: start: 20181214
  3. CIMZIA [Suspect]
     Active Substance: CERTOLIZUMAB PEGOL
     Dosage: UNK
     Route: 058

REACTIONS (4)
  - Musculoskeletal stiffness [Unknown]
  - Diabetic neuropathy [Unknown]
  - Pain in extremity [Unknown]
  - Inappropriate schedule of product administration [Unknown]
